FAERS Safety Report 5778323-3 (Version None)
Quarter: 2008Q2

REPORT INFORMATION
  Report Type: 
  Country: None (occurrence: None)
  Receive Date: 20080619
  Receipt Date: 20080609
  Transmission Date: 20081010
  Serious: Yes (Other)
  Sender: FDA-Public Use
  Company Number: US-ROCHE-569119

PATIENT
  Age: 41 Year
  Sex: Male

DRUGS (2)
  1. XENICAL [Suspect]
     Indication: DRUG USE FOR UNKNOWN INDICATION
     Dosage: DOSE: 120 MG 3-4 TIMES A DAY AND ABUSING IT TAKING 5-6 TIMES A DAY
     Route: 065
  2. UNSPECIFIED MEDICATIONS [Concomitant]
     Dosage: DRUG REPORTED AS HEART MEDICATIONS

REACTIONS (2)
  - DRUG ABUSE [None]
  - PARANOIA [None]
